FAERS Safety Report 7223498-2 (Version None)
Quarter: 2011Q1

REPORT INFORMATION
  Report Type: 
  Country: None (occurrence: None)
  Receive Date: 20110112
  Receipt Date: 20100804
  Transmission Date: 20110831
  Serious: No
  Sender: FDA-Public Use
  Company Number: US-ALLERGAN-1010095US

PATIENT
  Age: 60 Year
  Sex: Female

DRUGS (1)
  1. RESTASIS [Suspect]
     Indication: DRY EYE
     Dosage: 1 GTT, BID
     Dates: start: 20100701, end: 20100803

REACTIONS (4)
  - PRODUCT TASTE ABNORMAL [None]
  - DYSPHAGIA [None]
  - EPISTAXIS [None]
  - ORAL PAIN [None]
